FAERS Safety Report 5368918-3 (Version None)
Quarter: 2007Q2

REPORT INFORMATION
  Report Type: 
  Country: None (occurrence: None)
  Receive Date: 20070625
  Receipt Date: 20061204
  Transmission Date: 20071010
  Serious: No
  Sender: FDA-Public Use
  Company Number: US-ASTRAZENECA-2006UW27005

PATIENT
  Age: 69 Year
  Sex: Male
  Weight: 88.5 kg

DRUGS (2)
  1. CRESTOR [Suspect]
     Indication: BLOOD CHOLESTEROL INCREASED
     Route: 048
     Dates: start: 20061101
  2. ASPIRIN [Concomitant]

REACTIONS (1)
  - EPISTAXIS [None]
